FAERS Safety Report 7300960-5 (Version None)
Quarter: 2011Q1

REPORT INFORMATION
  Report Type: 
  Country: None (occurrence: None)
  Receive Date: 20110218
  Receipt Date: 20101220
  Transmission Date: 20110831
  Serious: Yes (Hospitalization, Other)
  Sender: FDA-Public Use
  Company Number: US-RANBAXY-2010RR-40962

PATIENT
  Sex: Female

DRUGS (10)
  1. CIPROFLOXACIN [Suspect]
     Indication: ILL-DEFINED DISORDER
     Route: 065
  2. PREDNISOLONE [Suspect]
     Indication: STEROID THERAPY
     Route: 048
  3. MELOXICAM [Concomitant]
     Indication: PAIN
     Route: 065
  4. LEVAQUIN [Suspect]
     Indication: BACTERIAL INFECTION
     Dosage: UNK
     Route: 048
     Dates: start: 20070901
  5. METHYLPREDNISOLONE [Suspect]
     Indication: STEROID THERAPY
     Route: 065
  6. GLIBOMET [Concomitant]
     Indication: DIABETES MELLITUS
  7. LEVAQUIN [Suspect]
     Indication: UPPER RESPIRATORY TRACT INFECTION
  8. LEVAQUIN [Suspect]
     Indication: PNEUMONIA
  9. LEVAQUIN [Suspect]
     Indication: DIVERTICULITIS
  10. DIOVAN [Concomitant]
     Indication: DIABETES MELLITUS
     Route: 065

REACTIONS (7)
  - MUSCLE INJURY [None]
  - MUSCULOSKELETAL PAIN [None]
  - TENDON DISORDER [None]
  - ARTHRALGIA [None]
  - TOXICITY TO VARIOUS AGENTS [None]
  - ROTATOR CUFF SYNDROME [None]
  - BURSITIS [None]
